FAERS Safety Report 24396026 (Version 5)
Quarter: 2025Q1

REPORT INFORMATION
  Report Type: Spontaneous
  Country: JP (occurrence: JP)
  Receive Date: 20241004
  Receipt Date: 20250103
  Transmission Date: 20250409
  Serious: Yes (Hospitalization, Other)
  Sender: AMGEN
  Company Number: JP-KISSEI-TV20240759_P_1

PATIENT
  Age: 83 Year
  Sex: Female
  Weight: 60.5 kg

DRUGS (15)
  1. TAVNEOS [Suspect]
     Active Substance: AVACOPAN
     Indication: Microscopic polyangiitis
     Route: 048
     Dates: start: 20240628, end: 20240809
  2. TAVNEOS [Suspect]
     Active Substance: AVACOPAN
     Indication: Anti-neutrophil cytoplasmic antibody positive vasculitis
  3. PREDNISOLONE [Concomitant]
     Active Substance: PREDNISOLONE
     Indication: Microscopic polyangiitis
     Dosage: PERORAL MEDICINE
     Dates: start: 20240627
  4. PREDNISOLONE [Concomitant]
     Active Substance: PREDNISOLONE
     Dosage: PERORAL MEDICINE
  5. PREDNISOLONE [Concomitant]
     Active Substance: PREDNISOLONE
     Dosage: PERORAL MEDICINE
  6. PREDNISOLONE [Concomitant]
     Active Substance: PREDNISOLONE
     Dosage: PERORAL MEDICINE
  7. PREDNISOLONE [Concomitant]
     Active Substance: PREDNISOLONE
     Dosage: PERORAL MEDICINE
  8. PREDNISOLONE [Concomitant]
     Active Substance: PREDNISOLONE
     Dosage: PERORAL MEDICINE
     Dates: end: 20240809
  9. RITUXIMAB [Concomitant]
     Active Substance: RITUXIMAB
     Indication: Microscopic polyangiitis
     Dosage: RECEIVED TWICE
     Route: 040
     Dates: start: 20240706
  10. ACYCLOVIR [Concomitant]
     Active Substance: ACYCLOVIR
  11. GANCICLOVIR [Concomitant]
     Active Substance: GANCICLOVIR
  12. AMLODIPINE [Concomitant]
     Active Substance: AMLODIPINE BESYLATE
     Route: 048
  13. LANSOPRAZOLE [Concomitant]
     Active Substance: LANSOPRAZOLE
     Route: 048
  14. SULFAMETHOXAZOLE\TRIMETHOPRIM [Concomitant]
     Active Substance: SULFAMETHOXAZOLE\TRIMETHOPRIM
     Indication: Antifungal prophylaxis
     Route: 048
  15. ALENDRONATE SODIUM [Concomitant]
     Active Substance: ALENDRONATE SODIUM
     Dosage: 35 MILLIGRAM, QWK
     Route: 048

REACTIONS (1)
  - Hepatitis viral [Unknown]
